FAERS Safety Report 17963156 (Version 1)
Quarter: 2020Q2

REPORT INFORMATION
  Report Type: Spontaneous
  Country: ES (occurrence: ES)
  Receive Date: 20200630
  Receipt Date: 20200630
  Transmission Date: 20200714
  Serious: Yes (Hospitalization, Other)
  Sender: FDA-Public Use
  Company Number: ES-PFIZER INC-2020249431

PATIENT
  Age: 36 Year
  Sex: Male

DRUGS (5)
  1. SUMIAL [Suspect]
     Active Substance: PROPRANOLOL HYDROCHLORIDE
     Dosage: 40 MG, 15-17 TABLETS
     Route: 048
     Dates: start: 20200609, end: 20200609
  2. PLENUR [LITHIUM CARBONATE] [Suspect]
     Active Substance: LITHIUM CARBONATE
     Dosage: 16000 MG (400 MG, 40 TABLETS) SINGLE
     Route: 048
     Dates: start: 20200609, end: 20200609
  3. LYRICA [Concomitant]
     Active Substance: PREGABALIN
     Dosage: UNK
  4. PRISTIQ EXTENDED-RELEASE [Suspect]
     Active Substance: DESVENLAFAXINE SUCCINATE
     Dosage: 1200 MG (100 MG 12 TABLETS), SINGLE
     Route: 048
     Dates: start: 20200609, end: 20200609
  5. TRANKIMAZIN [Suspect]
     Active Substance: ALPRAZOLAM
     Dosage: 0.5 MG, 2 BLISTER
     Route: 048
     Dates: start: 20200609, end: 20200609

REACTIONS (8)
  - Toxicity to various agents [Recovering/Resolving]
  - Suicide attempt [Unknown]
  - Aspartate aminotransferase increased [Unknown]
  - Dysarthria [Recovering/Resolving]
  - Intentional overdose [Recovering/Resolving]
  - Diarrhoea [Recovering/Resolving]
  - Alanine aminotransferase increased [Unknown]
  - Intentional self-injury [Recovering/Resolving]

NARRATIVE: CASE EVENT DATE: 20200609
